FAERS Safety Report 19390145 (Version 1)
Quarter: 2021Q2

REPORT INFORMATION
  Report Type: Spontaneous
  Country: AT (occurrence: AT)
  Receive Date: 20210608
  Receipt Date: 20210608
  Transmission Date: 20210717
  Serious: Yes (Death)
  Sender: FDA-Public Use
  Company Number: AT-BAYER-2021-145633

PATIENT
  Sex: Male

DRUGS (1)
  1. ADEMPAS [Suspect]
     Active Substance: RIOCIGUAT
     Dosage: UNK

REACTIONS (3)
  - Prescription drug used without a prescription [None]
  - Death [Fatal]
  - Product use issue [None]

NARRATIVE: CASE EVENT DATE: 20210521
